FAERS Safety Report 6792023-2 (Version None)
Quarter: 2010Q2

REPORT INFORMATION
  Report Type: 
  Country: None (occurrence: None)
  Receive Date: 20100624
  Receipt Date: 20080717
  Transmission Date: 20101027
  Serious: No
  Sender: FDA-Public Use
  Company Number: US-PFIZER INC-2008060094

PATIENT
  Sex: Female

DRUGS (2)
  1. AROMASIN [Suspect]
  2. HERBAL PREPARATION [Concomitant]

REACTIONS (3)
  - NAUSEA [None]
  - VOMITING [None]
  - WEIGHT FLUCTUATION [None]
